FAERS Safety Report 6496347-8 (Version None)
Quarter: 2009Q4

REPORT INFORMATION
  Report Type: 
  Country: None (occurrence: None)
  Receive Date: 20091206
  Receipt Date: 20091125
  Transmission Date: 20100525
  Serious: Yes (Other)
  Sender: FDA-Public Use
  Company Number: 1000010500

PATIENT
  Age: 69 Year
  Sex: Male

DRUGS (5)
  1. MEMANTINE HCL [Suspect]
     Indication: DEMENTIA ALZHEIMER'S TYPE
     Dosage: 20 MG (10 MG,2 IN 1 D),ORAL
     Route: 048
     Dates: start: 20070301
  2. LIPITOR [Concomitant]
  3. ASPIRIN [Concomitant]
  4. PANTOLOC(TABLETS) [Concomitant]
  5. PROSCAR [Concomitant]

REACTIONS (2)
  - BALANCE DISORDER [None]
  - FACIAL SPASM [None]
